FAERS Safety Report 9307255 (Version 5)
Quarter: 2022Q3

REPORT INFORMATION
  Report Type: Report from Study
  Country: DE (occurrence: DE)
  Receive Date: 20130524
  Receipt Date: 20220705
  Transmission Date: 20221027
  Serious: Yes (Hospitalization, Other)
  Sender: FDA-Public Use
  Company Number: DE-SHIRE-ALL1-2013-03348

PATIENT
  Age: 51 Year
  Sex: Male
  Weight: 55 kg

DRUGS (66)
  1. IDURSULFASE [Suspect]
     Active Substance: IDURSULFASE
     Indication: Mucopolysaccharidosis II
     Dosage: 30 MG, 1X/WEEK
     Route: 042
     Dates: start: 20061128
  2. IDURSULFASE [Suspect]
     Active Substance: IDURSULFASE
     Dosage: 0.55 MILLIGRAM/KILOGRAM
     Route: 042
     Dates: start: 20061128
  3. IDURSULFASE [Suspect]
     Active Substance: IDURSULFASE
     Dosage: 30 MILLIGRAM, 1/WEEK
     Route: 042
     Dates: start: 20140113
  4. IDURSULFASE [Suspect]
     Active Substance: IDURSULFASE
     Dosage: 0.55 MILLIGRAM/KILOGRAM
     Route: 042
     Dates: start: 20150706
  5. FLUTICASONE PROPIONATE\SALMETEROL XINAFOATE [Concomitant]
     Active Substance: FLUTICASONE PROPIONATE\SALMETEROL XINAFOATE
     Indication: Dyspnoea
     Dosage: UNK
     Route: 055
     Dates: start: 1997
  6. DIMETHINDENE [Concomitant]
     Active Substance: DIMETHINDENE
     Indication: Premedication
     Dosage: UNK
     Route: 048
     Dates: start: 20070131, end: 20070131
  7. DIMETHINDENE [Concomitant]
     Active Substance: DIMETHINDENE
     Dosage: UNK
     Route: 048
     Dates: start: 20070207, end: 20070327
  8. DIMETHINDENE [Concomitant]
     Active Substance: DIMETHINDENE
     Dosage: UNK
     Route: 048
     Dates: start: 20070403, end: 20070410
  9. DIMETHINDENE [Concomitant]
     Active Substance: DIMETHINDENE
     Dosage: UNK
     Route: 048
     Dates: start: 20070420, end: 20070508
  10. DIMETHINDENE [Concomitant]
     Active Substance: DIMETHINDENE
     Dosage: UNK
     Route: 048
     Dates: start: 20070521, end: 20070627
  11. DIMETHINDENE [Concomitant]
     Active Substance: DIMETHINDENE
     Dosage: UNK
     Route: 048
     Dates: start: 20070627, end: 20081127
  12. PREDNISOLONE [Concomitant]
     Active Substance: PREDNISOLONE
     Indication: Premedication
     Dosage: UNK
     Route: 042
     Dates: start: 20070131, end: 20070131
  13. PREDNISOLONE [Concomitant]
     Active Substance: PREDNISOLONE
     Dosage: UNK
     Route: 042
     Dates: start: 20070207, end: 20070207
  14. PREDNISOLONE [Concomitant]
     Active Substance: PREDNISOLONE
     Dosage: UNK
     Route: 042
     Dates: start: 20070214, end: 20070228
  15. PREDNISOLONE [Concomitant]
     Active Substance: PREDNISOLONE
     Dosage: UNK
     Route: 042
     Dates: start: 20070307, end: 20070307
  16. PREDNISOLONE [Concomitant]
     Active Substance: PREDNISOLONE
     Dosage: UNK
     Route: 042
     Dates: start: 20070307, end: 20070307
  17. PREDNISOLONE [Concomitant]
     Active Substance: PREDNISOLONE
     Dosage: UNK
     Route: 042
     Dates: start: 20070313, end: 20070313
  18. PREDNISOLONE [Concomitant]
     Active Substance: PREDNISOLONE
     Dosage: UNK
     Route: 042
     Dates: start: 201105, end: 201105
  19. PREDNISOLONE [Concomitant]
     Active Substance: PREDNISOLONE
     Dosage: UNK
     Route: 042
     Dates: start: 20140520, end: 20140520
  20. RANITIDINE [Concomitant]
     Active Substance: RANITIDINE
     Indication: Gastrointestinal disorder
     Dosage: UNK
     Route: 048
     Dates: start: 20070131, end: 20081127
  21. CARVEDILOL [Concomitant]
     Active Substance: CARVEDILOL
     Indication: Cardiovascular disorder
     Dosage: UNK
     Route: 048
     Dates: start: 20081127, end: 20090520
  22. DIGITOXIN [Concomitant]
     Active Substance: DIGITOXIN
     Indication: Cardiovascular disorder
     Dosage: UNK
     Route: 048
     Dates: start: 20081127, end: 2009
  23. SALMETEROL [Concomitant]
     Active Substance: SALMETEROL
     Indication: Respiratory disorder
     Dosage: UNK
     Route: 055
     Dates: start: 2009
  24. METOPROLOL [Concomitant]
     Active Substance: METOPROLOL
     Indication: Cardiovascular disorder
     Dosage: UNK
     Route: 048
     Dates: start: 20090520, end: 2009
  25. METOPROLOL [Concomitant]
     Active Substance: METOPROLOL
     Dosage: UNK
     Route: 048
     Dates: start: 2010, end: 2011
  26. METOPROLOL [Concomitant]
     Active Substance: METOPROLOL
     Dosage: UNK
     Route: 048
     Dates: start: 201206
  27. TERBINAFINE [Concomitant]
     Active Substance: TERBINAFINE
     Indication: Infection
     Dosage: UNK
     Route: 048
     Dates: start: 20090520, end: 2009
  28. RAMIPRIL [Concomitant]
     Active Substance: RAMIPRIL
     Indication: Hypertension
     Dosage: UNK
     Route: 048
     Dates: start: 20100924, end: 2011
  29. POTASSIUM [Concomitant]
     Active Substance: POTASSIUM
     Indication: Mineral supplementation
     Dosage: UNK
     Route: 048
     Dates: start: 20110105
  30. CEFUROXIME [Concomitant]
     Active Substance: CEFUROXIME
     Indication: Interventional procedure
     Dosage: UNK
     Route: 065
     Dates: start: 20110125, end: 20110125
  31. HEPARIN [Concomitant]
     Active Substance: HEPARIN SODIUM
     Indication: Anticoagulant therapy
     Dosage: UNK
     Route: 065
     Dates: start: 20110125, end: 20110127
  32. THEOPHYLLINE ANHYDROUS [Concomitant]
     Active Substance: THEOPHYLLINE ANHYDROUS
     Indication: Chronic obstructive pulmonary disease
     Dosage: UNK
     Route: 042
     Dates: start: 201105, end: 201105
  33. NOREPINEPHRINE [Concomitant]
     Active Substance: NOREPINEPHRINE
     Indication: Cardiovascular disorder
     Dosage: UNK
     Route: 042
     Dates: start: 201105, end: 20110528
  34. MILRINONE LACTATE [Concomitant]
     Active Substance: MILRINONE LACTATE
     Indication: Cardiovascular disorder
     Dosage: UNK
     Route: 042
     Dates: start: 201105, end: 20110528
  35. ESMOLOL [Concomitant]
     Active Substance: ESMOLOL HYDROCHLORIDE
     Indication: Tachycardia
     Dosage: UNK
     Route: 042
     Dates: start: 201105, end: 20110530
  36. AMIODARONE [Concomitant]
     Active Substance: AMIODARONE
     Indication: Atrial fibrillation
     Dosage: UNK
     Route: 042
     Dates: start: 201105, end: 201107
  37. AMIODARONE [Concomitant]
     Active Substance: AMIODARONE
     Dosage: UNK
     Route: 048
     Dates: start: 201105, end: 201107
  38. CEFOTAXIME [Concomitant]
     Active Substance: CEFOTAXIME SODIUM
     Indication: Antibiotic prophylaxis
     Dosage: UNK
     Route: 065
     Dates: start: 201105, end: 201105
  39. DALTEPARIN SODIUM [Concomitant]
     Active Substance: DALTEPARIN SODIUM
     Indication: Anticoagulant therapy
     Dosage: UNK
     Route: 058
     Dates: start: 20110530, end: 20110607
  40. MARCUMAR [Concomitant]
     Active Substance: PHENPROCOUMON
     Indication: Anticoagulant therapy
     Dosage: UNK
     Route: 048
     Dates: start: 20110531
  41. MAGNESIUM [Concomitant]
     Active Substance: MAGNESIUM
     Indication: Mineral supplementation
     Dosage: UNK
     Route: 048
     Dates: start: 20110605
  42. CALCIUM [Concomitant]
     Active Substance: CALCIUM
     Indication: Mineral supplementation
     Dosage: UNK
     Route: 048
     Dates: start: 20110605, end: 201107
  43. CALCIUM [Concomitant]
     Active Substance: CALCIUM
     Dosage: UNK
     Route: 048
     Dates: start: 20210727
  44. FUROSEMIDE [Concomitant]
     Active Substance: FUROSEMIDE
     Indication: Cardiovascular disorder
     Dosage: UNK
     Route: 042
     Dates: start: 20140520, end: 20140520
  45. FUROSEMIDE [Concomitant]
     Active Substance: FUROSEMIDE
     Dosage: UNK
     Route: 048
     Dates: start: 201206
  46. FUROSEMIDE [Concomitant]
     Active Substance: FUROSEMIDE
     Dosage: UNK
     Route: 042
     Dates: start: 201105, end: 20110530
  47. FUROSEMIDE [Concomitant]
     Active Substance: FUROSEMIDE
     Dosage: UNK
     Route: 048
     Dates: start: 2019
  48. AMOXICILLIN [Concomitant]
     Active Substance: AMOXICILLIN
     Indication: Infection
     Dosage: UNK
     Route: 048
     Dates: start: 20130316, end: 20130323
  49. AMOXICILLIN [Concomitant]
     Active Substance: AMOXICILLIN
     Indication: Nasopharyngitis
     Dosage: UNK
     Route: 065
     Dates: start: 20130316, end: 20130323
  50. AMOXICILLIN [Concomitant]
     Active Substance: AMOXICILLIN
     Indication: Bronchitis
     Dosage: UNK
     Route: 050
     Dates: start: 201311, end: 201311
  51. ROXITHROMYCIN [Concomitant]
     Active Substance: ROXITHROMYCIN
     Indication: Bronchitis
     Dosage: UNK
     Route: 050
     Dates: start: 201311, end: 201311
  52. ALBUTEROL [Concomitant]
     Active Substance: ALBUTEROL
     Indication: Dyspnoea
     Dosage: UNK
     Route: 050
     Dates: end: 2019
  53. CORTISONE [Concomitant]
     Active Substance: CORTISONE
     Indication: Sudden hearing loss
     Dosage: UNK
     Route: 050
     Dates: start: 20140304, end: 2014
  54. SULTAMICILLIN [Concomitant]
     Active Substance: SULTAMICILLIN
     Indication: Chronic obstructive pulmonary disease
     Dosage: UNK
     Route: 050
     Dates: start: 20140520, end: 20140530
  55. CLARITHROMYCIN [Concomitant]
     Active Substance: CLARITHROMYCIN
     Indication: Chronic obstructive pulmonary disease
     Dosage: UNK
     Route: 050
     Dates: start: 20140520, end: 20140530
  56. CLARITHROMYCIN [Concomitant]
     Active Substance: CLARITHROMYCIN
     Indication: Pneumonia
     Dosage: UNK
     Route: 050
     Dates: start: 20160828, end: 20160903
  57. NEBIVOLOL [Concomitant]
     Active Substance: NEBIVOLOL
     Indication: Hypertension
     Dosage: UNK
     Route: 050
     Dates: start: 20140530, end: 2015
  58. CEFIXIME [Concomitant]
     Active Substance: CEFIXIME
     Indication: Respiratory tract infection
     Dosage: UNK
     Route: 050
     Dates: start: 2016, end: 2016
  59. SODIUM CHLORIDE [Concomitant]
     Active Substance: SODIUM CHLORIDE
     Indication: Pneumonia
     Dosage: UNK
     Route: 055
     Dates: start: 20160825, end: 20160828
  60. CLARITHROMYCIN [Concomitant]
     Active Substance: CLARITHROMYCIN
     Indication: Respiratory tract infection
     Dosage: UNK
     Route: 050
     Dates: start: 20161201, end: 2016
  61. CLARITHROMYCIN [Concomitant]
     Active Substance: CLARITHROMYCIN
     Dosage: UNK
     Route: 050
     Dates: start: 20161203, end: 20161208
  62. ESCITALOPRAM [Concomitant]
     Active Substance: ESCITALOPRAM OXALATE
     Dosage: UNK
     Route: 048
     Dates: start: 2017
  63. ACETYLCYSTEINE [Concomitant]
     Active Substance: ACETYLCYSTEINE
     Dosage: UNK
     Route: 048
     Dates: start: 2019, end: 2019
  64. CEFTRIAXONE [Concomitant]
     Active Substance: CEFTRIAXONE
     Indication: Pneumonia
     Dosage: UNK
     Route: 042
     Dates: start: 2019, end: 2019
  65. PIPERACILLIN SODIUM\TAZOBACTAM SODIUM [Concomitant]
     Active Substance: PIPERACILLIN SODIUM\TAZOBACTAM SODIUM
     Indication: Pneumonia
     Dosage: UNK
     Route: 042
     Dates: start: 2019, end: 2019
  66. ERYTHROMYCIN [Concomitant]
     Active Substance: ERYTHROMYCIN
     Indication: Pneumonia
     Dosage: UNK
     Route: 050
     Dates: start: 201911, end: 201911

REACTIONS (2)
  - Chronic obstructive pulmonary disease [Recovered/Resolved with Sequelae]
  - Respiratory distress [Unknown]

NARRATIVE: CASE EVENT DATE: 20130424
